FAERS Safety Report 24467237 (Version 1)
Quarter: 2024Q4

REPORT INFORMATION
  Report Type: Report from Study
  Country: US (occurrence: US)
  Receive Date: 20241018
  Receipt Date: 20241018
  Transmission Date: 20250115
  Serious: No
  Sender: ROCHE
  Company Number: US-ROCHE-3569055

PATIENT
  Age: 73 Year
  Sex: Male

DRUGS (10)
  1. XOLAIR [Suspect]
     Active Substance: OMALIZUMAB
     Indication: Idiopathic urticaria
     Route: 058
  2. ECOTRIN [Concomitant]
     Active Substance: ASPIRIN
  3. ZEBETA [Concomitant]
     Active Substance: BISOPROLOL FUMARATE
  4. EPIPEN [Concomitant]
     Active Substance: EPINEPHRINE
  5. ZETIA [Concomitant]
     Active Substance: EZETIMIBE
  6. AMARYL [Concomitant]
     Active Substance: GLIMEPIRIDE
  7. GLUCOPHAGE XR [Concomitant]
     Active Substance: METFORMIN HYDROCHLORIDE
  8. MOUNJARO [Concomitant]
     Active Substance: TIRZEPATIDE
  9. DYAZIDE [Concomitant]
     Active Substance: HYDROCHLOROTHIAZIDE\TRIAMTERENE
  10. FLOMAX [Concomitant]
     Active Substance: TAMSULOSIN HYDROCHLORIDE

REACTIONS (2)
  - Off label use [Unknown]
  - Pruritus [Unknown]
